FAERS Safety Report 18709858 (Version 11)
Quarter: 2024Q2

REPORT INFORMATION
  Report Type: Spontaneous
  Country: CA (occurrence: CA)
  Receive Date: 20210107
  Receipt Date: 20240626
  Transmission Date: 20240716
  Serious: Yes (Other)
  Sender: FDA-Public Use
  Company Number: CA-CELLTRION INC.-2020CA021816

PATIENT

DRUGS (27)
  1. INFLECTRA [Suspect]
     Active Substance: INFLIXIMAB-DYYB
     Indication: Crohn^s disease
     Dosage: 800 MG, EVERY 6 WEEKS
     Route: 042
     Dates: start: 20200424
  2. INFLECTRA [Suspect]
     Active Substance: INFLIXIMAB-DYYB
     Indication: Cortical dysplasia
     Dosage: 800 MG, EVERY 6 WEEKS
     Route: 042
     Dates: start: 20200424
  3. INFLECTRA [Suspect]
     Active Substance: INFLIXIMAB-DYYB
     Dosage: 800 MG, EVERY 6 WEEKS
     Route: 042
     Dates: start: 20200424
  4. INFLECTRA [Suspect]
     Active Substance: INFLIXIMAB-DYYB
     Dosage: 800 MG, EVERY 6 WEEKS
     Route: 042
     Dates: start: 20200604
  5. INFLECTRA [Suspect]
     Active Substance: INFLIXIMAB-DYYB
     Dosage: 800 MG, EVERY 6 WEEKS
     Route: 042
     Dates: start: 20200715
  6. INFLECTRA [Suspect]
     Active Substance: INFLIXIMAB-DYYB
     Dosage: 800 MG, EVERY 6 WEEKS
     Route: 042
     Dates: start: 20200826
  7. INFLECTRA [Suspect]
     Active Substance: INFLIXIMAB-DYYB
     Dosage: 800 MG, EVERY 6 WEEKS
     Route: 042
     Dates: start: 20200826
  8. INFLECTRA [Suspect]
     Active Substance: INFLIXIMAB-DYYB
     Dosage: 800 MG, EVERY 6 WEEKS
     Route: 042
     Dates: start: 20201007
  9. INFLECTRA [Suspect]
     Active Substance: INFLIXIMAB-DYYB
     Dosage: 800 MG, EVERY 6 WEEKS
     Route: 042
     Dates: start: 20201118
  10. INFLECTRA [Suspect]
     Active Substance: INFLIXIMAB-DYYB
     Dosage: 800 MG, EVERY 6 WEEKS
     Route: 042
     Dates: start: 20201230
  11. INFLECTRA [Suspect]
     Active Substance: INFLIXIMAB-DYYB
     Dosage: 800 MG, EVERY 6 WEEKS
     Route: 042
     Dates: start: 20210210
  12. INFLECTRA [Suspect]
     Active Substance: INFLIXIMAB-DYYB
     Dosage: 800 MG, EVERY 6 WEEKS
     Route: 042
     Dates: start: 20210401
  13. INFLECTRA [Suspect]
     Active Substance: INFLIXIMAB-DYYB
     Dosage: 800 MG, EVERY 6 WEEKS
     Route: 042
     Dates: start: 20210506
  14. INFLECTRA [Suspect]
     Active Substance: INFLIXIMAB-DYYB
     Dosage: 800 MG, EVERY 6 WEEKS
     Route: 042
     Dates: start: 20210617
  15. INFLECTRA [Suspect]
     Active Substance: INFLIXIMAB-DYYB
     Dosage: 800 MG EVERY 6 WEEKS
     Route: 042
     Dates: start: 20210729
  16. INFLECTRA [Suspect]
     Active Substance: INFLIXIMAB-DYYB
     Dosage: 800 MG, EVERY 6 WEEKS
     Route: 042
     Dates: start: 20220113
  17. INFLECTRA [Suspect]
     Active Substance: INFLIXIMAB-DYYB
     Dosage: 800 MG, EVERY 6 WEEKS
     Route: 042
     Dates: start: 20220224
  18. INFLECTRA [Suspect]
     Active Substance: INFLIXIMAB-DYYB
     Dosage: 800 MG EVERY 6 WEEKS
     Route: 042
     Dates: start: 20230125
  19. INFLECTRA [Suspect]
     Active Substance: INFLIXIMAB-DYYB
     Dosage: 800 MG EVERY 6 WEEKS
     Route: 042
     Dates: start: 20231003
  20. INFLECTRA [Suspect]
     Active Substance: INFLIXIMAB-DYYB
     Dosage: 800 MG EVERY 6 WEEKS
     Route: 042
     Dates: start: 20231115
  21. INFLECTRA [Suspect]
     Active Substance: INFLIXIMAB-DYYB
     Dosage: UNK
     Route: 042
     Dates: start: 20231220
  22. INFLECTRA [Suspect]
     Active Substance: INFLIXIMAB-DYYB
     Dosage: 900 MG EVERY 4 WEEKS
     Route: 042
  23. INFLECTRA [Suspect]
     Active Substance: INFLIXIMAB-DYYB
     Dosage: 900 MG EVERY 4 WEEKS
     Route: 042
     Dates: start: 20240117
  24. IMURAN [Concomitant]
     Active Substance: AZATHIOPRINE
     Dosage: 125 MG
     Route: 065
  25. IMURAN [Concomitant]
     Active Substance: AZATHIOPRINE
     Dosage: 100 MG
     Route: 065
  26. RENFLEXIS [Concomitant]
     Active Substance: INFLIXIMAB-ABDA
     Dosage: UNK
     Dates: start: 2023
  27. VITAMIN B12 [Concomitant]
     Active Substance: CYANOCOBALAMIN
     Dosage: 1 DF, DOSAGE INFO UNK
     Route: 065

REACTIONS (32)
  - Haematochezia [Unknown]
  - Thrombosis [Unknown]
  - Small intestine ulcer [Unknown]
  - Deep vein thrombosis [Unknown]
  - Exposure to SARS-CoV-2 [Recovered/Resolved]
  - Heart rate decreased [Unknown]
  - Poor venous access [Unknown]
  - Faecal calprotectin increased [Unknown]
  - Pain in extremity [Unknown]
  - Breath sounds abnormal [Unknown]
  - Anal fistula [Not Recovered/Not Resolved]
  - Proctalgia [Unknown]
  - Weight decreased [Unknown]
  - Vaginal fistula [Unknown]
  - Drainage [Unknown]
  - Malaise [Unknown]
  - Generalised oedema [Unknown]
  - Ocular hyperaemia [Unknown]
  - Wheezing [Unknown]
  - Therapeutic product effect decreased [Unknown]
  - Pain [Unknown]
  - Blood pressure fluctuation [Unknown]
  - Oedema [Unknown]
  - Peripheral swelling [Not Recovered/Not Resolved]
  - Oedema peripheral [Not Recovered/Not Resolved]
  - Dyspnoea [Not Recovered/Not Resolved]
  - Fatigue [Unknown]
  - Condition aggravated [Not Recovered/Not Resolved]
  - Blood pressure increased [Unknown]
  - Intentional product use issue [Unknown]
  - Off label use [Unknown]
  - Off label use [Unknown]

NARRATIVE: CASE EVENT DATE: 20200424
